FAERS Safety Report 17968856 (Version 1)
Quarter: 2020Q3

REPORT INFORMATION
  Report Type: Spontaneous
  Country: AT (occurrence: AT)
  Receive Date: 20200701
  Receipt Date: 20200701
  Transmission Date: 20201103
  Serious: Yes (Other)
  Sender: FDA-Public Use
  Company Number: AT-TEVA-2020-AT-1792851

PATIENT
  Age: 67 Year
  Sex: Male

DRUGS (2)
  1. SOMATULIN 120 MG INJEKTIONSL?SUNG IN EINER FERTIGSPRITZE [Concomitant]
     Dosage: 1 DOSAGE FORMS
     Dates: start: 201910, end: 202003
  2. EVEROLIMUS RATIOPHARM 5 MG TABLETTEN [Suspect]
     Active Substance: EVEROLIMUS
     Indication: SMALL INTESTINE CARCINOMA
     Dosage: 2 DOSAGE FORMS
     Route: 048
     Dates: start: 202001, end: 202003

REACTIONS (7)
  - Cardiovascular disorder [Not Recovered/Not Resolved]
  - Weight decreased [Not Recovered/Not Resolved]
  - Pain in extremity [Not Recovered/Not Resolved]
  - Peripheral swelling [Not Recovered/Not Resolved]
  - Muscle atrophy [Not Recovered/Not Resolved]
  - Fatigue [Not Recovered/Not Resolved]
  - Anxiety [Not Recovered/Not Resolved]

NARRATIVE: CASE EVENT DATE: 2020
